FAERS Safety Report 11215292 (Version 3)
Quarter: 2015Q4

REPORT INFORMATION
  Report Type: Spontaneous
  Country: US (occurrence: US)
  Receive Date: 20150624
  Receipt Date: 20151001
  Transmission Date: 20160304
  Serious: Yes (Other)
  Sender: FDA-Public Use
  Company Number: US-PFIZER INC-2015207915

PATIENT
  Age: 58 Year
  Sex: Male
  Weight: 100 kg

DRUGS (1)
  1. ADVIL [Suspect]
     Active Substance: IBUPROFEN
     Indication: HEADACHE
     Dosage: 500 MG, UNK (2 , 250MG)
     Route: 048
     Dates: start: 20150611, end: 20150611

REACTIONS (10)
  - Chemical burn of gastrointestinal tract [Not Recovered/Not Resolved]
  - Throat irritation [Not Recovered/Not Resolved]
  - Burning sensation [Not Recovered/Not Resolved]
  - Oral discomfort [Not Recovered/Not Resolved]
  - Visual impairment [Unknown]
  - Oral pain [Not Recovered/Not Resolved]
  - Wrong technique in product usage process [Recovered/Resolved]
  - Glossodynia [Not Recovered/Not Resolved]
  - Tongue blistering [Not Recovered/Not Resolved]
  - Gingival erosion [Not Recovered/Not Resolved]

NARRATIVE: CASE EVENT DATE: 201506
